FAERS Safety Report 16636505 (Version 1)
Quarter: 2019Q3

REPORT INFORMATION
  Report Type: Spontaneous
  Country: US (occurrence: US)
  Receive Date: 20190613
  Receipt Date: 20190613
  Transmission Date: 20191004
  Serious: Yes (Hospitalization)
  Sender: FDA-Public Use
  Company Number: None

PATIENT
  Age: 84 Year
  Sex: Female

DRUGS (7)
  1. FUROSEMIDE. [Concomitant]
     Active Substance: FUROSEMIDE
  2. LABETALOL [Concomitant]
     Active Substance: LABETALOL\LABETALOL HYDROCHLORIDE
  3. ESBRIET [Suspect]
     Active Substance: PIRFENIDONE
     Indication: IDIOPATHIC PULMONARY FIBROSIS
     Dosage: ?          OTHER DOSE:3 TABLETS;?
     Route: 048
     Dates: start: 20181112
  4. AMLODIPINE [Concomitant]
     Active Substance: AMLODIPINE BESYLATE
  5. CHOLESTYRAM POW [Concomitant]
  6. ALBUTERNOL [Concomitant]
  7. AER HFA [Concomitant]

REACTIONS (4)
  - Anaemia [None]
  - Eye pruritus [None]
  - Haemorrhage [None]
  - Pruritus [None]

NARRATIVE: CASE EVENT DATE: 201905
